FAERS Safety Report 9412371 (Version 1)
Quarter: 2013Q3

REPORT INFORMATION
  Report Type: Report from Study
  Country: ES (occurrence: ES)
  Receive Date: 20130722
  Receipt Date: 20130722
  Transmission Date: 20140515
  Serious: Yes (Death, Other)
  Sender: FDA-Public Use
  Company Number: ES-ROCHE-1249476

PATIENT
  Sex: 0

DRUGS (2)
  1. RITUXIMAB [Suspect]
     Indication: AUTOIMMUNE DISORDER
     Dosage: DOSE OF RITUXIMAB AS 375MG/M2/WEEK (X4) IN 169 PATIENTS AND 1GM PER 15 DAYS (X2) IN 27 PATIENTS
     Route: 065
  2. RITUXIMAB [Suspect]
     Indication: OFF LABEL USE

REACTIONS (20)
  - Sudden death [Fatal]
  - Endocarditis [Fatal]
  - Pulmonary embolism [Fatal]
  - Sepsis [Fatal]
  - Pneumonia [Fatal]
  - Neoplasm [Unknown]
  - Encephalitis viral [Unknown]
  - Opportunistic infection [Unknown]
  - Interstitial lung disease [Unknown]
  - Blood disorder [Unknown]
  - Herpes ophthalmic [Unknown]
  - Osteomyelitis [Unknown]
  - Pyelonephritis [Unknown]
  - Vaginal infection [Unknown]
  - Bacteraemia [Unknown]
  - Skin infection [Unknown]
  - Infusion related reaction [Unknown]
  - Respiratory tract infection [Unknown]
  - Urinary tract infection [Unknown]
  - Neutropenia [Unknown]
